FAERS Safety Report 9586251 (Version 3)
Quarter: 2013Q4

REPORT INFORMATION
  Report Type: Spontaneous
  Country: JP (occurrence: JP)
  Receive Date: 20131003
  Receipt Date: 20131224
  Transmission Date: 20140711
  Serious: Yes (Hospitalization)
  Sender: FDA-Public Use
  Company Number: JP-OTSUKA-JP-2013-14144

PATIENT
  Age: 78 Year
  Sex: Male
  Weight: 65 kg

DRUGS (8)
  1. PLETAAL [Suspect]
     Indication: LACUNAR INFARCTION
     Dosage: 100 MG MILLIGRAM(S), BID
     Route: 048
     Dates: start: 201209, end: 20121020
  2. SHOSEIRYUTO [Suspect]
     Indication: NASOPHARYNGITIS
     Dosage: 3 DF DOSAGE FORM, DAILY DOSE
     Route: 048
     Dates: end: 20121020
  3. ZYLORIC [Concomitant]
     Dosage: 110 MG MILLIGRAM(S), QAM
     Route: 048
  4. ADALAT CR [Concomitant]
     Dosage: 1 DF DOSAGE FORM, QAM
     Route: 048
  5. DIOVAN [Concomitant]
     Dosage: 40 MG MILLIGRAM(S), QAM
     Route: 048
  6. URSO [Concomitant]
     Dosage: 100 MG MILLIGRAM(S), TID
     Route: 048
  7. JUVELA N [Concomitant]
     Dosage: 1 DF DOSAGE FORM, TID
     Route: 048
  8. URIEF [Concomitant]
     Dosage: 4 MG MILLIGRAM(S), BID
     Route: 048

REACTIONS (2)
  - Drug interaction [Recovered/Resolved]
  - Ventricular tachycardia [Recovered/Resolved]
